FAERS Safety Report 10542036 (Version 2)
Quarter: 2014Q4

REPORT INFORMATION
  Report Type: Spontaneous
  Country: GB (occurrence: GB)
  Receive Date: 20141024
  Receipt Date: 20141024
  Transmission Date: 20150529
  Serious: Yes (Hospitalization, Other)
  Sender: FDA-Public Use
  Company Number: GB-GILEAD-2014-0116075

PATIENT
  Age: 38 Year
  Sex: Male
  Weight: 99.6 kg

DRUGS (8)
  1. SPIRONOLACTONE. [Concomitant]
     Active Substance: SPIRONOLACTONE
     Dosage: 100 MG, UNK
     Route: 048
  2. METOCLOPRAMIDE. [Concomitant]
     Active Substance: METOCLOPRAMIDE
     Dosage: 10 MG, TID
     Route: 048
  3. RIBAVIRIN. [Concomitant]
     Active Substance: RIBAVIRIN
     Indication: HEPATITIS C
     Dosage: 200 MG, BID
     Route: 048
     Dates: start: 20140618, end: 20140917
  4. LACTULOSE. [Concomitant]
     Active Substance: LACTULOSE
     Dosage: 20 MG, QID
     Route: 048
  5. ZOPICLONE [Concomitant]
     Active Substance: ZOPICLONE
     Dosage: 7.5 MG, TID
     Route: 048
  6. SOFOSBUVIR [Suspect]
     Active Substance: SOFOSBUVIR
     Indication: HEPATITIS C
     Dosage: 400 MG, UNK
     Route: 048
     Dates: start: 20140618, end: 20140917
  7. METHADONE [Concomitant]
     Active Substance: METHADONE HYDROCHLORIDE
     Route: 048
  8. QUETIAPINE [Concomitant]
     Active Substance: QUETIAPINE
     Dosage: UNK

REACTIONS (11)
  - Rash [Unknown]
  - Pancytopenia [Unknown]
  - Rash erythematous [Unknown]
  - Constipation [Unknown]
  - Nausea [Unknown]
  - Viral load increased [Unknown]
  - Drug ineffective [Unknown]
  - Vomiting [Unknown]
  - Lethargy [Unknown]
  - Conjunctivitis [Unknown]
  - Fatigue [Unknown]

NARRATIVE: CASE EVENT DATE: 2014
